FAERS Safety Report 5844965-X (Version None)
Quarter: 2008Q3

REPORT INFORMATION
  Report Type: 
  Country: None (occurrence: None)
  Receive Date: 20080813
  Receipt Date: 20080813
  Transmission Date: 20090109
  Serious: Yes (Life-Threatening, Hospitalization)
  Sender: FDA-Public Use
  Company Number: None

PATIENT
  Age: 50 Year
  Sex: Male
  Weight: 93 kg

DRUGS (1)
  1. INSULIN [Suspect]
     Indication: DIABETES MELLITUS
     Dosage: 25 UNITS PM SQ
     Route: 058
     Dates: start: 20080703

REACTIONS (2)
  - ACCIDENTAL OVERDOSE [None]
  - HYPOGLYCAEMIA [None]
